FAERS Safety Report 9868004 (Version 3)
Quarter: 2014Q4

REPORT INFORMATION
  Report Type: Spontaneous
  Country: US (occurrence: US)
  Receive Date: 20140204
  Receipt Date: 20141006
  Transmission Date: 20150529
  Serious: Yes (Hospitalization)
  Sender: FDA-Public Use
  Company Number: US-009507513-1402USA000676

PATIENT
  Sex: Female

DRUGS (1)
  1. NUVARING [Suspect]
     Active Substance: ETHINYL ESTRADIOL\ETONOGESTREL
     Indication: HORMONE REPLACEMENT THERAPY
     Dosage: UNK
     Route: 067
     Dates: start: 200611

REACTIONS (5)
  - Off label use [Unknown]
  - Menorrhagia [Unknown]
  - Deep vein thrombosis [Unknown]
  - Rosacea [Unknown]
  - Dyspnoea [Unknown]

NARRATIVE: CASE EVENT DATE: 200611
